FAERS Safety Report 7801485-0 (Version None)
Quarter: 2011Q4

REPORT INFORMATION
  Report Type: 
  Country: None (occurrence: None)
  Receive Date: 20111007
  Receipt Date: 20110927
  Transmission Date: 20120403
  Serious: Yes (Other)
  Sender: FDA-Public Use
  Company Number: US-CELGENEUS-163-21880-11100087

PATIENT
  Sex: Male

DRUGS (2)
  1. ATIVAN [Concomitant]
     Route: 065
  2. REVLIMID [Suspect]
     Indication: MYELODYSPLASTIC SYNDROME
     Dosage: 5 MILLIGRAM
     Route: 048
     Dates: start: 20101020

REACTIONS (2)
  - DEMENTIA [None]
  - ABNORMAL DREAMS [None]
